FAERS Safety Report 13820057 (Version 1)
Quarter: 2017Q3

REPORT INFORMATION
  Report Type: Spontaneous
  Country: US (occurrence: US)
  Receive Date: 20170801
  Receipt Date: 20170801
  Transmission Date: 20171127
  Serious: No
  Sender: FDA-Public Use
  Company Number: US-GLENMARK PHARMACEUTICALS-2016GMK025232

PATIENT

DRUGS (6)
  1. PROBIOTIC                          /06395501/ [Concomitant]
     Active Substance: BIFIDOBACTERIUM ANIMALIS LACTIS
     Indication: PRODUCT USED FOR UNKNOWN INDICATION
     Dosage: UNK
     Route: 065
  2. MUPIROCIN. [Suspect]
     Active Substance: MUPIROCIN
     Indication: LOCALISED INFECTION
  3. MUPIROCIN. [Suspect]
     Active Substance: MUPIROCIN
     Indication: VARICOSE VEIN
     Dosage: UNK, TID
     Route: 061
     Dates: start: 20161125, end: 20161128
  4. WARFARIN [Concomitant]
     Active Substance: WARFARIN
     Indication: ATRIAL FIBRILLATION
     Dosage: 4 MG, BY MOUTH
     Route: 065
  5. MUCINEX [Concomitant]
     Active Substance: GUAIFENESIN
     Indication: PRODUCT USED FOR UNKNOWN INDICATION
     Dosage: UNK
     Route: 065
  6. METOPROLOL. [Concomitant]
     Active Substance: METOPROLOL
     Indication: ATRIAL FIBRILLATION
     Dosage: 50 MG, BY MOUTH
     Route: 065

REACTIONS (3)
  - Application site dryness [Recovered/Resolved]
  - Product use in unapproved indication [Unknown]
  - Application site pain [Recovered/Resolved]
